FAERS Safety Report 15811652 (Version 3)
Quarter: 2019Q3

REPORT INFORMATION
  Report Type: Spontaneous
  Country: US (occurrence: US)
  Receive Date: 20190111
  Receipt Date: 20190918
  Transmission Date: 20191004
  Serious: No
  Sender: FDA-Public Use
  Company Number: US-PFIZER INC-2019006679

PATIENT
  Age: 53 Year
  Sex: Female

DRUGS (1)
  1. DROPERIDOL. [Suspect]
     Active Substance: DROPERIDOL
     Dosage: UNK

REACTIONS (3)
  - Drug hypersensitivity [Unknown]
  - Dystonia [Unknown]
  - Palpitations [Unknown]
